FAERS Safety Report 4313477-7 (Version None)
Quarter: 2004Q1

REPORT INFORMATION
  Report Type: 
  Country: None (occurrence: None)
  Receive Date: 20040304
  Receipt Date: 20040216
  Transmission Date: 20041129
  Serious: Yes (Hospitalization)
  Sender: FDA-Public Use
  Company Number: USA040259381

PATIENT
  Age: 82 Year
  Sex: Female

DRUGS (3)
  1. HUMULIN 70/30 [Suspect]
     Dosage: 20 U/2 DAY
     Dates: start: 20030901
  2. HUMULIN N [Suspect]
     Dates: start: 19980101, end: 20030901
  3. PRAVACHOL [Concomitant]

REACTIONS (1)
  - BLOOD GLUCOSE DECREASED [None]
